FAERS Safety Report 9719194 (Version 2)
Quarter: 2013Q4

REPORT INFORMATION
  Report Type: Spontaneous
  Country: GB (occurrence: GB)
  Receive Date: 20131127
  Receipt Date: 20131127
  Transmission Date: 20140711
  Serious: Yes (Life-Threatening, Hospitalization)
  Sender: FDA-Public Use
  Company Number: PHFR2013GB005080

PATIENT
  Age: 71 Year
  Sex: Male

DRUGS (6)
  1. DICLOFENAC [Suspect]
     Indication: BACK PAIN
     Dosage: 75 MG, QD
     Route: 048
  2. ACETYLSALICYLIC ACID [Suspect]
     Dosage: 150 MG, QD
     Route: 048
  3. PREGABALIN [Concomitant]
     Indication: BACK PAIN
     Dosage: 50 MG, BID
     Route: 048
  4. AMITRIPTYLINE [Concomitant]
     Indication: BACK PAIN
     Dosage: 20 MG, QD AT NIGHT
     Route: 048
  5. SIMVASTATIN [Concomitant]
     Dosage: 40 MG, QD AT NIGHT
     Route: 048
  6. ROBAXIN [Concomitant]
     Indication: BACK PAIN
     Dosage: 750 MG, BID
     Route: 048

REACTIONS (1)
  - Duodenal ulcer perforation [Unknown]
